FAERS Safety Report 8505992-7 (Version None)
Quarter: 2012Q3

REPORT INFORMATION
  Report Type: 
  Country: None (occurrence: None)
  Receive Date: 20120712
  Receipt Date: 20120702
  Transmission Date: 20120928
  Serious: Yes (Other)
  Sender: FDA-Public Use
  Company Number: RS-GLAXOSMITHKLINE-B0813489A

PATIENT
  Sex: Male

DRUGS (3)
  1. PAROXETINE HYDROCHLORIDE [Suspect]
     Indication: PRODUCT USED FOR UNKNOWN INDICATION
     Dosage: 40MG PER DAY
     Route: 048
     Dates: start: 20120402
  2. LAMICTAL [Concomitant]
  3. BROMAZEPAM [Concomitant]

REACTIONS (7)
  - PSYCHOMOTOR HYPERACTIVITY [None]
  - KLEPTOMANIA [None]
  - COGNITIVE DISORDER [None]
  - AGGRESSION [None]
  - LOGORRHOEA [None]
  - ABNORMAL BEHAVIOUR [None]
  - SPEECH DISORDER [None]
